FAERS Safety Report 25578738 (Version 2)
Quarter: 2025Q3

REPORT INFORMATION
  Report Type: Report from Study
  Country: PH (occurrence: PH)
  Receive Date: 20250718
  Receipt Date: 20250925
  Transmission Date: 20251020
  Serious: Yes (Death)
  Sender: OTSUKA
  Company Number: PH-MMM-Otsuka-HLE17XT8

PATIENT

DRUGS (1)
  1. TOLVAPTAN [Suspect]
     Active Substance: TOLVAPTAN
     Indication: End stage renal disease
     Dosage: 1 DF, DAILY (SAMSCA 15MG 1 TABLET A DAY)
     Route: 048
     Dates: start: 20250611, end: 20250614

REACTIONS (2)
  - Renal failure [Fatal]
  - Product use in unapproved indication [Unknown]

NARRATIVE: CASE EVENT DATE: 20250611
